FAERS Safety Report 7541976-3 (Version None)
Quarter: 2011Q2

REPORT INFORMATION
  Report Type: 
  Country: None (occurrence: None)
  Receive Date: 20110613
  Receipt Date: 20110606
  Transmission Date: 20111010
  Serious: Yes (Death, Hospitalization)
  Sender: FDA-Public Use
  Company Number: FR-CELGENEUS-056-C5013-11042029

PATIENT
  Sex: Female
  Weight: 53 kg

DRUGS (28)
  1. CIPROFLOXACIN [Concomitant]
     Dosage: 1000 MILLIGRAM
     Route: 048
     Dates: start: 20110329, end: 20110407
  2. TRANSIPEG [Concomitant]
     Indication: CONSTIPATION PROPHYLAXIS
     Dosage: 11.8 GRAM
     Route: 048
     Dates: start: 20110322, end: 20110407
  3. OSTEPAM [Concomitant]
     Indication: BONE PAIN
     Dosage: 90 MILLIGRAM
     Route: 051
     Dates: start: 20110321, end: 20110321
  4. NORMACOL [Concomitant]
     Indication: CONSTIPATION
     Route: 054
     Dates: start: 20110328, end: 20110329
  5. BUDESONIDE [Concomitant]
     Indication: NASAL POLYPS
     Dosage: 2 MILLIGRAM
     Route: 055
     Dates: start: 20110408, end: 20110412
  6. VALACYCLOVIR HYDROCHLORIDE [Concomitant]
     Dosage: 1000 MILLIGRAM
     Route: 048
     Dates: start: 20100819, end: 20110422
  7. PYOSTACINE [Concomitant]
     Indication: COUGH
     Dosage: 3 GRAM
     Route: 048
     Dates: start: 20110412, end: 20110418
  8. DEXAMETHASONE [Suspect]
     Indication: MULTIPLE MYELOMA
     Dosage: 20 MILLIGRAM
     Route: 065
     Dates: start: 20100819
  9. MOTILIUM [Concomitant]
     Route: 065
  10. POTASSIUM CHLORIDE [Concomitant]
     Indication: HYPOKALAEMIA
     Route: 048
     Dates: start: 20110404, end: 20110404
  11. LOVENOX [Concomitant]
     Indication: THROMBOSIS PROPHYLAXIS
     Dosage: .0571 MILLILITER
     Route: 058
     Dates: start: 20100819
  12. MORPHINE SULFATE [Concomitant]
     Dosage: 20 MILLIGRAM
     Route: 048
     Dates: start: 20110321, end: 20110422
  13. POLYIONIC PERFUSION [Concomitant]
     Dosage: 500 MILLILITER
     Route: 051
     Dates: start: 20110318, end: 20110326
  14. DEXAMETHASONE [Suspect]
     Dosage: 20 MILLIGRAM
     Route: 065
     Dates: start: 20110401, end: 20110408
  15. SORBITOL [Concomitant]
     Indication: CONSTIPATION
     Dosage: 10 GRAM
     Route: 048
     Dates: start: 20110409, end: 20110413
  16. LENALIDOMIDE [Suspect]
     Indication: MULTIPLE MYELOMA
     Dosage: 10 MILLIGRAM
     Route: 048
     Dates: start: 20100819
  17. EPORATIO [Concomitant]
     Indication: ANAEMIA
     Dosage: 2.8571 IU (INTERNATIONAL UNIT)
     Route: 058
     Dates: start: 20110203
  18. ACUPAN [Concomitant]
     Route: 051
     Dates: start: 20110326, end: 20110328
  19. ACUPAN [Concomitant]
     Dosage: 60 MILLIGRAM
     Route: 030
     Dates: start: 20110317, end: 20110326
  20. ACETAMINOPHEN [Concomitant]
     Dosage: 3000 MILLIGRAM
     Route: 048
     Dates: start: 20110317, end: 20110404
  21. MORPHINE SULFATE [Concomitant]
     Dosage: 10 TO 30 MG TWICE DAILY
     Route: 048
     Dates: start: 20110322, end: 20110422
  22. NEORECORMON [Concomitant]
     Indication: ANAEMIA
     Dosage: 428.5714 IU (INTERNATIONAL UNIT)
     Route: 058
     Dates: start: 20110317
  23. DOMPERIDONE [Concomitant]
     Indication: NAUSEA
     Dosage: 30 MILLIGRAM
     Route: 048
     Dates: start: 20110407, end: 20110407
  24. POLYIONIC PERFUSION [Concomitant]
     Dosage: 60 MILLIGRAM
     Route: 030
     Dates: start: 20110317, end: 20110326
  25. LENALIDOMIDE [Suspect]
     Dosage: 10 MILLIGRAM
     Route: 048
     Dates: start: 20110401, end: 20110413
  26. DUPHALAC [Concomitant]
     Indication: CONSTIPATION
     Route: 048
     Dates: start: 20110407, end: 20110413
  27. NICARDIPINE HCL [Concomitant]
     Route: 048
     Dates: start: 19290101
  28. ZOMETA [Concomitant]
     Dosage: 5 MILLIGRAM
     Route: 051
     Dates: start: 20110321, end: 20110321

REACTIONS (2)
  - RESPIRATORY FAILURE [None]
  - LOBAR PNEUMONIA [None]
